APPROVED DRUG PRODUCT: ANAGRELIDE HYDROCHLORIDE
Active Ingredient: ANAGRELIDE HYDROCHLORIDE
Strength: EQ 1MG BASE
Dosage Form/Route: CAPSULE;ORAL
Application: A209151 | Product #002 | TE Code: AB
Applicant: TORRENT PHARMACEUTICALS LTD
Approved: Jun 30, 2017 | RLD: No | RS: No | Type: RX